FAERS Safety Report 9008482 (Version 1)
Quarter: 2013Q1

REPORT INFORMATION
  Report Type: Spontaneous
  Country: US (occurrence: US)
  Receive Date: 20130111
  Receipt Date: 20130111
  Transmission Date: 20140127
  Serious: No
  Sender: FDA-Public Use
  Company Number: US-PFIZER INC-2013010386

PATIENT
  Age: 30 Year
  Sex: Female
  Weight: 74.83 kg

DRUGS (2)
  1. ADVIL EXTRA STRENGTH [Suspect]
     Indication: TOOTHACHE
     Dosage: 800 MG (TWO 400MG), 1X/DAY
     Route: 048
     Dates: start: 20130108
  2. ZITHROMAX [Concomitant]
     Dosage: UNK

REACTIONS (3)
  - Incorrect dose administered [Unknown]
  - Nausea [Not Recovered/Not Resolved]
  - Dizziness [Not Recovered/Not Resolved]
